FAERS Safety Report 8426942-8 (Version None)
Quarter: 2012Q2

REPORT INFORMATION
  Report Type: 
  Country: None (occurrence: None)
  Receive Date: 20120531
  Receipt Date: 20120519
  Transmission Date: 20120825
  Serious: Yes (Hospitalization, Other)
  Sender: FDA-Public Use
  Company Number: 2012SP026979

PATIENT
  Sex: Female

DRUGS (2)
  1. RIBAVIRIN [Suspect]
     Indication: HEPATITIS C
     Dates: start: 20111204
  2. PEG-INTRON [Suspect]
     Indication: HEPATITIS C
     Dates: start: 20111204

REACTIONS (14)
  - VIRAL LOAD INCREASED [None]
  - CRYING [None]
  - RIB FRACTURE [None]
  - ROAD TRAFFIC ACCIDENT [None]
  - WRIST FRACTURE [None]
  - ANGER [None]
  - ALOPECIA [None]
  - LOSS OF CONSCIOUSNESS [None]
  - CONCUSSION [None]
  - HYPOAESTHESIA [None]
  - ALTERED VISUAL DEPTH PERCEPTION [None]
  - VISUAL IMPAIRMENT [None]
  - DRUG DOSE OMISSION [None]
  - FALL [None]
